FAERS Safety Report 8580589-1 (Version None)
Quarter: 2012Q3

REPORT INFORMATION
  Report Type: 
  Country: None (occurrence: None)
  Receive Date: 20120809
  Receipt Date: 20120731
  Transmission Date: 20120928
  Serious: Yes (Other)
  Sender: FDA-Public Use
  Company Number: GB-AMGEN-GBRCT2012049377

PATIENT
  Age: 81 Year
  Sex: Female
  Weight: 62 kg

DRUGS (5)
  1. COD-LIVER OIL [Concomitant]
     Dosage: UNK
  2. ACETAMINOPHEN [Concomitant]
     Dosage: UNK
     Dates: start: 20090101
  3. CYCLOSPORINE [Concomitant]
     Dosage: UNK
     Dates: start: 20101215
  4. FOLIC ACID [Concomitant]
     Dosage: UNK
     Dates: start: 20090101
  5. ETANERCEPT [Suspect]
     Indication: PRODUCT USED FOR UNKNOWN INDICATION
     Dosage: 50 MG, QWK
     Dates: start: 20110728

REACTIONS (1)
  - HEPATIC NEOPLASM MALIGNANT [None]
